FAERS Safety Report 5937843-9 (Version None)
Quarter: 2008Q4

REPORT INFORMATION
  Report Type: 
  Country: None (occurrence: None)
  Receive Date: 20081031
  Receipt Date: 20081021
  Transmission Date: 20090506
  Serious: Yes (Other)
  Sender: FDA-Public Use
  Company Number: US-BAXTER-2008BH010748

PATIENT
  Age: 21 Year
  Sex: Male
  Weight: 104 kg

DRUGS (1)
  1. ADVATE [Suspect]
     Indication: FACTOR VIII DEFICIENCY
     Route: 042
     Dates: start: 20080615, end: 20080917

REACTIONS (2)
  - ABDOMINAL PAIN [None]
  - DIARRHOEA [None]
